FAERS Safety Report 19739445 (Version 1)
Quarter: 2021Q3

REPORT INFORMATION
  Report Type: Spontaneous
  Country: DE (occurrence: DE)
  Receive Date: 20210824
  Receipt Date: 20210824
  Transmission Date: 20211014
  Serious: Yes (Hospitalization)
  Sender: FDA-Public Use
  Company Number: DE-TEVA-2021-DE-1943391

PATIENT
  Age: 28 Year
  Sex: Female
  Weight: 79.8 kg

DRUGS (2)
  1. MITOMYCIN. [Suspect]
     Active Substance: MITOMYCIN
     Dosage: 10 MG, SCHEME
     Route: 065
  2. FLUOROURACIL. [Suspect]
     Active Substance: FLUOROURACIL
     Dosage: 1000 MG, SCHEME
     Route: 065

REACTIONS (4)
  - Dysuria [Unknown]
  - General physical health deterioration [Unknown]
  - Diarrhoea [Unknown]
  - Administration site discomfort [Unknown]
